FAERS Safety Report 21734853 (Version 3)
Quarter: 2023Q1

REPORT INFORMATION
  Report Type: Report from Study
  Country: JP (occurrence: JP)
  Receive Date: 20221215
  Receipt Date: 20230306
  Transmission Date: 20230418
  Serious: Yes (Other)
  Sender: FDA-Public Use
  Company Number: JP-JNJFOC-20221224105

PATIENT

DRUGS (1)
  1. SIMPONI [Suspect]
     Active Substance: GOLIMUMAB
     Indication: Rheumatoid arthritis
     Dosage: DOSE UNKNOWN
     Route: 058

REACTIONS (17)
  - Cellulitis [Unknown]
  - Enterocolitis [Unknown]
  - Pneumonia bacterial [Unknown]
  - Bronchiolitis [Unknown]
  - Pneumonia aspiration [Unknown]
  - Prostate cancer [Unknown]
  - Bladder cancer [Unknown]
  - Breast cancer [Unknown]
  - Lung neoplasm malignant [Unknown]
  - Intestinal perforation [Unknown]
  - Cardiac failure chronic [Unknown]
  - Organising pneumonia [Unknown]
  - Breast cancer [Unknown]
  - Oesophageal carcinoma [Unknown]
  - Rash [Unknown]
  - Vasculitis [Unknown]
  - Drug ineffective [Unknown]
